FAERS Safety Report 16707951 (Version 2)
Quarter: 2019Q3

REPORT INFORMATION
  Report Type: Spontaneous
  Country: BR (occurrence: BR)
  Receive Date: 20190815
  Receipt Date: 20190924
  Transmission Date: 20191004
  Serious: Yes (Life-Threatening, Hospitalization, Other)
  Sender: FDA-Public Use
  Company Number: BR-ELI_LILLY_AND_COMPANY-BR201908006585

PATIENT
  Sex: Female
  Weight: 90 kg

DRUGS (9)
  1. GEMZAR [Suspect]
     Active Substance: GEMCITABINE HYDROCHLORIDE
     Indication: PANCREATIC CARCINOMA
     Dosage: 1615 MG, UNKNOWN
     Route: 042
     Dates: start: 20180607
  2. OMEPRAZOLE. [Concomitant]
     Active Substance: OMEPRAZOLE
  3. LOSARTAN. [Concomitant]
     Active Substance: LOSARTAN
  4. PURAN [Concomitant]
     Active Substance: LEVOTHYROXINE SODIUM
  5. IMOSEC [Concomitant]
     Active Substance: LOPERAMIDE
  6. FLORATIL AT [Concomitant]
  7. NAUSEDRON [Concomitant]
     Active Substance: ONDANSETRON HYDROCHLORIDE
  8. RISEDRONATE [Concomitant]
     Active Substance: RISEDRONATE SODIUM
  9. DIAMICRON [Concomitant]
     Active Substance: GLICLAZIDE

REACTIONS (10)
  - Dyspnoea [Unknown]
  - Malaise [Unknown]
  - Agitation [Unknown]
  - Cyanosis [Unknown]
  - Procedural vomiting [Unknown]
  - Hypertension [Unknown]
  - Hyperhidrosis [Unknown]
  - Pallor [Unknown]
  - Aggression [Unknown]
  - Polyuria [Unknown]

NARRATIVE: CASE EVENT DATE: 20190808
